FAERS Safety Report 9995594 (Version 1)
Quarter: 2014Q1

REPORT INFORMATION
  Report Type: Spontaneous
  Country: US (occurrence: None)
  Receive Date: 20140225
  Receipt Date: 20140225
  Transmission Date: 20141002
  Serious: Yes (Other)
  Sender: FDA-Public Use
  Company Number: 2012-580

PATIENT
  Age: 60 Year
  Sex: Male
  Weight: 68 kg

DRUGS (5)
  1. PRIALT [Suspect]
     Indication: NEURALGIA
     Dosage: 0.05 UNK, ONCE/HOUR, INTRATHECAL
     Route: 037
     Dates: start: 20121004, end: 20121025
  2. MECLIZINE HCL [Suspect]
  3. METHADONE HCL ( METHADONE HYDROCHLORIDE) [Concomitant]
  4. PROMETHAZINE ( PROMETHAZINE HYDROCHLORIDE) [Concomitant]
  5. RANITIDINE ( RANITIDINE HYDROCHLORIDE) [Concomitant]

REACTIONS (6)
  - Urinary retention [None]
  - Dizziness [None]
  - Hypoaesthesia [None]
  - Paraesthesia [None]
  - Fall [None]
  - Memory impairment [None]
